FAERS Safety Report 18554614 (Version 1)
Quarter: 2020Q4

REPORT INFORMATION
  Report Type: Report from Study
  Country: ES (occurrence: ES)
  Receive Date: 20201127
  Receipt Date: 20201127
  Transmission Date: 20210114
  Serious: Yes (Other)
  Sender: FDA-Public Use
  Company Number: ES-GLAXOSMITHKLINE-ES2020GSK228840

PATIENT

DRUGS (1)
  1. VALACICLOVIR HYDROCHLORIDE [Suspect]
     Active Substance: VALACYCLOVIR HYDROCHLORIDE
     Indication: CONGENITAL CYTOMEGALOVIRUS INFECTION
     Dosage: 2 G, QID
     Route: 064

REACTIONS (5)
  - Off label use [Unknown]
  - Intraventricular haemorrhage neonatal [Unknown]
  - Chorioretinitis [Unknown]
  - Deafness unilateral [Unknown]
  - Foetal exposure during pregnancy [Unknown]
